FAERS Safety Report 21807558 (Version 1)
Quarter: 2023Q1

REPORT INFORMATION
  Report Type: Spontaneous
  Country: PT (occurrence: PT)
  Receive Date: 20230103
  Receipt Date: 20230103
  Transmission Date: 20230418
  Serious: Yes (Other)
  Sender: FDA-Public Use
  Company Number: PT-BRISTOL-MYERS SQUIBB COMPANY-2022-159325

PATIENT
  Age: 67 Year
  Sex: Male

DRUGS (9)
  1. DEXAMETHASONE [Suspect]
     Active Substance: DEXAMETHASONE
     Indication: Plasma cell myeloma
     Dosage: 3RD LINE
     Route: 065
     Dates: start: 201908
  2. DEXAMETHASONE [Suspect]
     Active Substance: DEXAMETHASONE
     Dosage: WITH PARTIAL RESPONSE 2ND LINE
     Route: 065
     Dates: start: 201709, end: 201811
  3. DEXAMETHASONE [Suspect]
     Active Substance: DEXAMETHASONE
     Dosage: COMPLETED RESPONSE (CR) OBTAINED IN APR2021 AND 4TH LINE
     Route: 065
     Dates: start: 202009, end: 202202
  4. DARATUMUMAB [Suspect]
     Active Substance: DARATUMUMAB
     Indication: Plasma cell myeloma
     Route: 065
     Dates: start: 20221221
  5. DARATUMUMAB [Suspect]
     Active Substance: DARATUMUMAB
     Dosage: COMPLETED RESPONSE (CR) OBTAINED IN APR2021 AND 4TH LINE
     Route: 065
     Dates: start: 202009, end: 202202
  6. THALIDOMIDE [Suspect]
     Active Substance: THALIDOMIDE
     Indication: Plasma cell myeloma
     Dosage: WITH PARTIAL RESPONSE 2ND LINE
     Route: 065
     Dates: start: 201709, end: 201811
  7. THALIDOMIDE [Suspect]
     Active Substance: THALIDOMIDE
     Dosage: COMPLETED RESPONSE (CR) OBTAINED IN APR2021 4TH LINE
     Route: 065
     Dates: start: 202009, end: 202202
  8. CYCLOPHOSPHAMIDE [Suspect]
     Active Substance: CYCLOPHOSPHAMIDE
     Indication: Plasma cell myeloma
     Dosage: WITH PARTIAL RESPONSE 2ND LINE
     Route: 065
     Dates: start: 201709, end: 201811
  9. CYCLOPHOSPHAMIDE [Suspect]
     Active Substance: CYCLOPHOSPHAMIDE
     Dosage: COMPLETED RESPONSE (CR) OBTAINED IN APR2021 AND 4TH LINE
     Route: 065
     Dates: start: 202009, end: 202202

REACTIONS (1)
  - Plasma cell myeloma [Unknown]

NARRATIVE: CASE EVENT DATE: 20220201
